FAERS Safety Report 7424869-1 (Version None)
Quarter: 2011Q2

REPORT INFORMATION
  Report Type: 
  Country: None (occurrence: None)
  Receive Date: 20110419
  Receipt Date: 20110412
  Transmission Date: 20111010
  Serious: Yes (Other)
  Sender: FDA-Public Use
  Company Number: KR-MERCK-1104KOR00018

PATIENT
  Sex: Female

DRUGS (3)
  1. TIBOLONE [Concomitant]
     Indication: MENOPAUSAL SYMPTOMS
     Route: 048
     Dates: start: 20090101
  2. FOSAMAX PLUS D [Suspect]
     Indication: OSTEOPOROSIS
     Route: 048
     Dates: start: 20090101
  3. CALCIUM CITRATE AND CHOLECALCIFEROL [Concomitant]
     Indication: OSTEOPOROSIS
     Route: 048
     Dates: start: 20090101

REACTIONS (4)
  - DIPLOPIA [None]
  - ANEURYSM [None]
  - DIZZINESS [None]
  - BLINDNESS TRANSIENT [None]
